FAERS Safety Report 22524884 (Version 2)
Quarter: 2023Q2

REPORT INFORMATION
  Report Type: Report from Study
  Country: CO (occurrence: CO)
  Receive Date: 20230606
  Receipt Date: 20230613
  Transmission Date: 20230722
  Serious: Yes (Hospitalization)
  Sender: FDA-Public Use
  Company Number: CO-JNJFOC-20230574224

PATIENT
  Age: 68 Year
  Sex: Female
  Weight: 47 kg

DRUGS (1)
  1. DARZALEX [Suspect]
     Active Substance: DARATUMUMAB
     Indication: Plasma cell myeloma
     Route: 042
     Dates: start: 20230328

REACTIONS (5)
  - Hypocalcaemia [Not Recovered/Not Resolved]
  - Tremor [Not Recovered/Not Resolved]
  - Facial pain [Unknown]
  - Toothache [Unknown]
  - Chest pain [Unknown]

NARRATIVE: CASE EVENT DATE: 20230529
